FAERS Safety Report 6336099-5 (Version None)
Quarter: 2009Q3

REPORT INFORMATION
  Report Type: 
  Country: None (occurrence: None)
  Receive Date: 20090828
  Receipt Date: 20090828
  Transmission Date: 20100115
  Serious: Yes (Disabling)
  Sender: FDA-Public Use
  Company Number: None

PATIENT
  Age: 45 Year
  Sex: Female
  Weight: 68.0396 kg

DRUGS (1)
  1. ZICAM COLD REMEDY ZICAM LLC [Suspect]
     Indication: ANOSMIA
     Dosage: ONE SPRAY EA. SIDE 3X DAY NASAL
     Route: 045
     Dates: start: 20000901

REACTIONS (4)
  - ANOSMIA [None]
  - HYPERSENSITIVITY [None]
  - INFECTION [None]
  - NASAL DISCOMFORT [None]
